FAERS Safety Report 5116184-6 (Version None)
Quarter: 2006Q3

REPORT INFORMATION
  Report Type: 
  Country: None (occurrence: None)
  Receive Date: 20060927
  Receipt Date: 20060726
  Transmission Date: 20061208
  Serious: Yes (Other)
  Sender: FDA-Public Use
  Company Number: US-BRISTOL-MYERS SQUIBB COMPANY-13455225

PATIENT
  Age: 59 Year
  Sex: Male
  Weight: 100 kg

DRUGS (9)
  1. DEFINITY [Suspect]
     Indication: ECHOCARDIOGRAM
     Route: 042
     Dates: start: 20060726, end: 20060726
  2. AMIODARONE HCL [Concomitant]
  3. HYDROCHLOROTHIAZDE TAB [Concomitant]
  4. DIGOXIN [Concomitant]
  5. LASIX [Concomitant]
  6. LIPITOR [Concomitant]
  7. VITAMINS [Concomitant]
  8. TOPROL-XL [Concomitant]
  9. NABUMETONE [Concomitant]

REACTIONS (1)
  - PAIN [None]
